FAERS Safety Report 6056780-5 (Version None)
Quarter: 2009Q1

REPORT INFORMATION
  Report Type: 
  Country: None (occurrence: None)
  Receive Date: 20090126
  Receipt Date: 20090126
  Transmission Date: 20090719
  Serious: Yes (Other)
  Sender: FDA-Public Use
  Company Number: None

PATIENT
  Age: 59 Year
  Sex: Female
  Weight: 90.7194 kg

DRUGS (1)
  1. MICRO-K [Suspect]
     Indication: HYPOKALAEMIA
     Dosage: 14 DAILY PO
     Route: 048
     Dates: start: 20020403, end: 20020419

REACTIONS (4)
  - BLOOD POTASSIUM DECREASED [None]
  - DIARRHOEA [None]
  - MALAISE [None]
  - THERAPEUTIC RESPONSE UNEXPECTED WITH DRUG SUBSTITUTION [None]
